FAERS Safety Report 10462673 (Version 1)
Quarter: 2014Q3

REPORT INFORMATION
  Report Type: Spontaneous
  Country: US (occurrence: US)
  Receive Date: 20140918
  Receipt Date: 20140918
  Transmission Date: 20150326
  Serious: No
  Sender: FDA-Public Use
  Company Number: US-BAUSCH-BL-2014-001871

PATIENT
  Age: 58 Year
  Sex: Female

DRUGS (3)
  1. ADVANCED EYE RELIEF/EYE WASH [Suspect]
     Active Substance: WATER
     Indication: EYE IRRIGATION
     Dosage: ONCE DAILY IN THE MORNING
     Route: 047
     Dates: start: 20140401
  2. HYPROMELLOSE [Concomitant]
     Active Substance: HYPROMELLOSES
     Indication: PRODUCT USED FOR UNKNOWN INDICATION
  3. NEOMYCIN AND POLYMYXIN B SULFATES AND DEXAMETHASONE OPHTHALMIC OINTMEN [Suspect]
     Active Substance: DEXAMETHASONE\NEOMYCIN\POLYMYXIN B SULFATE
     Indication: POSTOPERATIVE CARE
     Dosage: ONCE EVERY NIGHT AT BEDTIME
     Route: 047

REACTIONS (2)
  - Erythema [Not Recovered/Not Resolved]
  - Vision blurred [Not Recovered/Not Resolved]

NARRATIVE: CASE EVENT DATE: 20140401
